FAERS Safety Report 20659766 (Version 1)
Quarter: 2022Q1

REPORT INFORMATION
  Report Type: Other
  Country: None (occurrence: EG)
  Receive Date: 20220331
  Receipt Date: 20220331
  Transmission Date: 20220423
  Serious: Yes (Death, Life-Threatening, Hospitalization, Other)
  Sender: FDA-Public Use
  Company Number: EG-ACIC Fine Chemicals Inc-2127289

PATIENT
  Age: 4 Year
  Sex: Male
  Weight: 18 kg

DRUGS (2)
  1. TRANEXAMIC ACID [Suspect]
     Active Substance: TRANEXAMIC ACID
     Indication: Haemorrhage prophylaxis
     Route: 042
  2. SEVOFLURANE [Concomitant]
     Active Substance: SEVOFLURANE
     Route: 042
     Dates: start: 20190701

REACTIONS (9)
  - Acute kidney injury [Fatal]
  - Cardiac arrest [Fatal]
  - Generalised tonic-clonic seizure [Not Recovered/Not Resolved]
  - Loss of consciousness [Not Recovered/Not Resolved]
  - Urine output decreased [Not Recovered/Not Resolved]
  - Metabolic acidosis [Not Recovered/Not Resolved]
  - Haemodynamic instability [Not Recovered/Not Resolved]
  - Tachycardia [Not Recovered/Not Resolved]
  - Off label use [Unknown]

NARRATIVE: CASE EVENT DATE: 20190701
